FAERS Safety Report 4442203-6 (Version None)
Quarter: 2004Q3

REPORT INFORMATION
  Report Type: 
  Country: None (occurrence: None)
  Receive Date: 20040903
  Receipt Date: 20040727
  Transmission Date: 20050211
  Serious: Yes (Other)
  Sender: FDA-Public Use
  Company Number: 2004UW15813

PATIENT
  Age: 63 Year
  Sex: Male
  Weight: 95.2554 kg

DRUGS (5)
  1. CRESTOR [Suspect]
     Indication: BLOOD CHOLESTEROL INCREASED
     Dosage: 5 MG DAILY PO
     Route: 048
  2. ASPIRIN [Concomitant]
  3. TOPROL-XL [Concomitant]
  4. FLECAINIDE ACETATE [Concomitant]
  5. VIAGRA [Concomitant]

REACTIONS (3)
  - BLOOD VISCOSITY INCREASED [None]
  - COAGULATION TIME SHORTENED [None]
  - MYALGIA [None]
